FAERS Safety Report 7470645-3 (Version None)
Quarter: 2011Q2

REPORT INFORMATION
  Report Type: 
  Country: None (occurrence: None)
  Receive Date: 20110510
  Receipt Date: 20110426
  Transmission Date: 20111010
  Serious: Yes (Hospitalization, Other)
  Sender: FDA-Public Use
  Company Number: US-BAYER-201023677NA

PATIENT
  Age: 39 Year
  Sex: Female
  Weight: 150.11 kg

DRUGS (11)
  1. YAZ [Suspect]
     Dosage: UNK
     Route: 048
     Dates: start: 20071201, end: 20080501
  2. VITAMIN B-COMPLEX [VITAMIN B-COMPLEX] [Concomitant]
     Dosage: UNK UNK, CONT
     Route: 048
  3. HERBAL THYROID MEDICATION [Concomitant]
  4. MULTI-VITAMIN [Concomitant]
     Dosage: UNK UNK, CONT
     Route: 048
  5. BETA BLOCKING AGENTS [Concomitant]
  6. SYNTHROID [Concomitant]
     Indication: HYPOTHYROIDISM
     Dosage: 150 MCG/24HR, CONT
     Route: 048
     Dates: start: 19890101
  7. ASCORBIC ACID [Concomitant]
     Dosage: UNK UNK, CONT
     Route: 048
  8. YAZ [Suspect]
     Indication: ORAL CONTRACEPTION
     Dosage: UNK
     Route: 048
     Dates: start: 20071201, end: 20080501
  9. LOVAZA [Concomitant]
     Dosage: UNK UNK, CONT
     Route: 048
  10. SINGULAIR [Concomitant]
     Dosage: 10 MG, PRN
     Route: 048
  11. THYTROPIN [Concomitant]

REACTIONS (6)
  - OEDEMA PERIPHERAL [None]
  - PULMONARY EMBOLISM [None]
  - DYSPNOEA [None]
  - PAIN IN EXTREMITY [None]
  - DIZZINESS [None]
  - DEEP VEIN THROMBOSIS [None]
